FAERS Safety Report 23872887 (Version 1)
Quarter: 2024Q2

REPORT INFORMATION
  Report Type: Spontaneous
  Country: US (occurrence: US)
  Receive Date: 20240520
  Receipt Date: 20240520
  Transmission Date: 20240715
  Serious: No
  Sender: FDA-Public Use
  Company Number: US-BAUSCH-BL-2024-007578

PATIENT
  Sex: Female

DRUGS (1)
  1. RETIN-A [Suspect]
     Active Substance: TRETINOIN
     Indication: Product used for unknown indication
     Dosage: EVERY NIGHT
     Route: 061

REACTIONS (1)
  - Application site dryness [Not Recovered/Not Resolved]
